FAERS Safety Report 14214528 (Version 1)
Quarter: 2017Q4

REPORT INFORMATION
  Report Type: Spontaneous
  Country: US (occurrence: US)
  Receive Date: 20171122
  Receipt Date: 20171122
  Transmission Date: 20180321
  Serious: No
  Sender: FDA-Public Use
  Company Number: US-PFIZER INC-2017500971

PATIENT
  Sex: Female

DRUGS (1)
  1. LATANOPROST. [Suspect]
     Active Substance: LATANOPROST
     Dosage: UNK

REACTIONS (6)
  - Intraocular pressure increased [Unknown]
  - Visual impairment [Unknown]
  - Drug ineffective [Unknown]
  - Eye irritation [Unknown]
  - Condition aggravated [Unknown]
  - Eye colour change [Unknown]
